FAERS Safety Report 18188087 (Version 6)
Quarter: 2021Q3

REPORT INFORMATION
  Report Type: Report from Study
  Country: US (occurrence: US)
  Receive Date: 20200824
  Receipt Date: 20210805
  Transmission Date: 20211014
  Serious: Yes (Hospitalization, Other)
  Sender: FDA-Public Use
  Company Number: NVSC2020US229704

PATIENT
  Age: 60 Year
  Sex: Female

DRUGS (60)
  1. SODIUM CHLORIDE. [Concomitant]
     Active Substance: SODIUM CHLORIDE
     Dosage: 0.9 %
     Route: 065
     Dates: start: 20200815, end: 20200815
  2. IOHEXOL [Concomitant]
     Active Substance: IOHEXOL
     Indication: DIFFUSE LARGE B-CELL LYMPHOMA
     Dosage: UNK
     Route: 065
     Dates: start: 20200805, end: 20200805
  3. ACETAMINOPHEN. [Concomitant]
     Active Substance: ACETAMINOPHEN
     Dosage: UNK
     Route: 065
     Dates: start: 20200815, end: 20200817
  4. PIPERACILLIN/TAZOBACTAM [Concomitant]
     Active Substance: PIPERACILLIN SODIUM\TAZOBACTAM SODIUM
     Indication: ANTIBIOTIC PROPHYLAXIS
     Dosage: UNK
     Route: 065
     Dates: start: 20200811, end: 20200820
  5. OLANZAPINE. [Concomitant]
     Active Substance: OLANZAPINE
     Indication: PRODUCT USED FOR UNKNOWN INDICATION
     Dosage: UNK
     Route: 065
     Dates: start: 20200814, end: 20200814
  6. DEXTROSE. [Concomitant]
     Active Substance: DEXTROSE
     Indication: PROPHYLAXIS
     Dosage: UNK
     Route: 065
     Dates: start: 20200814, end: 20200814
  7. PANTOPRAZOLE [Concomitant]
     Active Substance: PANTOPRAZOLE
     Indication: GASTROOESOPHAGEAL REFLUX PROPHYLAXIS
     Dosage: UNK
     Route: 065
     Dates: start: 20200815, end: 20200828
  8. LOPERAMIDE [Concomitant]
     Active Substance: LOPERAMIDE
     Dosage: UNK
     Route: 065
     Dates: start: 20200817, end: 20200819
  9. LORAZEPAM. [Concomitant]
     Active Substance: LORAZEPAM
     Indication: PRODUCT USED FOR UNKNOWN INDICATION
     Dosage: UNK
     Route: 065
     Dates: start: 20200805
  10. IMODIUM [Concomitant]
     Active Substance: LOPERAMIDE HYDROCHLORIDE
     Indication: DIARRHOEA
     Dosage: 2 MG, PRN
     Route: 065
     Dates: start: 20200815
  11. SODIUM CHLORIDE. [Concomitant]
     Active Substance: SODIUM CHLORIDE
     Dosage: 0.9 %
     Route: 065
     Dates: start: 20200810, end: 20200810
  12. POTASSIUM CHLORIDE. [Concomitant]
     Active Substance: POTASSIUM CHLORIDE
     Dosage: UNK
     Route: 065
     Dates: start: 20200817, end: 20200908
  13. ONDANSETRON [Concomitant]
     Active Substance: ONDANSETRON
     Indication: PROPHYLAXIS OF NAUSEA AND VOMITING
     Dosage: UNK
     Route: 065
     Dates: start: 20200814, end: 20200827
  14. MAGNESIUM SULFATE. [Concomitant]
     Active Substance: MAGNESIUM SULFATE
     Indication: ELECTROLYTE SUBSTITUTION THERAPY
     Dosage: UNK
     Route: 065
     Dates: start: 20200807, end: 20200814
  15. MAGNESIUM SULFATE. [Concomitant]
     Active Substance: MAGNESIUM SULFATE
     Dosage: UNK
     Route: 065
     Dates: start: 20200817, end: 20200819
  16. MELATONIN [Concomitant]
     Active Substance: MELATONIN
     Indication: INSOMNIA
     Dosage: UNK
     Route: 065
     Dates: start: 20200713
  17. ADENOSINE. [Concomitant]
     Active Substance: ADENOSINE
     Indication: CYTOKINE RELEASE SYNDROME
     Dosage: UNK
     Route: 065
     Dates: start: 20200815, end: 20200815
  18. LOPERAMIDE [Concomitant]
     Active Substance: LOPERAMIDE
     Indication: DIARRHOEA
     Dosage: UNK
     Route: 065
     Dates: start: 20200816, end: 20200817
  19. SODIUM CHLORIDE. [Concomitant]
     Active Substance: SODIUM CHLORIDE
     Indication: CYTOKINE RELEASE SYNDROME
     Dosage: 0.9 %
     Route: 065
     Dates: start: 20200808, end: 20200814
  20. POTASSIUM CHLORIDE. [Concomitant]
     Active Substance: POTASSIUM CHLORIDE
     Indication: ELECTROLYTE SUBSTITUTION THERAPY
     Dosage: UNK
     Route: 065
     Dates: start: 20200811, end: 20200811
  21. ACYCLOVIR. [Concomitant]
     Active Substance: ACYCLOVIR
     Dosage: UNK
     Route: 065
     Dates: start: 20200816, end: 20200820
  22. VASOPRESSIN. [Concomitant]
     Active Substance: VASOPRESSIN
     Indication: CYTOKINE RELEASE SYNDROME
     Dosage: UNK
     Route: 065
     Dates: start: 20200815, end: 20200817
  23. KYMRIAH [Suspect]
     Active Substance: TISAGENLECLEUCEL
     Indication: DIFFUSE LARGE B-CELL LYMPHOMA
     Dosage: UNK
     Route: 042
     Dates: start: 20200813
  24. COMPARATOR TOCILIZUMAB [Suspect]
     Active Substance: TOCILIZUMAB
     Indication: DIFFUSE LARGE B-CELL LYMPHOMA
     Dosage: 8 MG/KG
     Route: 042
     Dates: start: 20200814
  25. SODIUM CHLORIDE. [Concomitant]
     Active Substance: SODIUM CHLORIDE
     Indication: DIFFUSE LARGE B-CELL LYMPHOMA
     Dosage: PF 0.9 %
     Route: 065
     Dates: start: 20200805, end: 20200805
  26. OXYCODONE [Concomitant]
     Active Substance: OXYCODONE
     Indication: PRODUCT USED FOR UNKNOWN INDICATION
     Dosage: UNK
     Route: 065
     Dates: start: 20200807, end: 20200819
  27. FENTANYL CITRATE. [Concomitant]
     Active Substance: FENTANYL CITRATE
     Indication: HYDRONEPHROSIS
     Dosage: UNK, PF
     Route: 065
     Dates: start: 20200807, end: 20200807
  28. CEFTRIAXONE. [Concomitant]
     Active Substance: CEFTRIAXONE
     Indication: HYDRONEPHROSIS
     Dosage: UNK
     Route: 065
     Dates: start: 20200807, end: 20200810
  29. ACETAMINOPHEN. [Concomitant]
     Active Substance: ACETAMINOPHEN
     Indication: DIFFUSE LARGE B-CELL LYMPHOMA
     Dosage: UNK
     Route: 065
     Dates: start: 20200810, end: 20200817
  30. IOHEXOL [Concomitant]
     Active Substance: IOHEXOL
     Dosage: UNK
     Route: 065
     Dates: start: 20200817, end: 20200817
  31. TRIMETHOPRIM SULFAMETHOXAZOLE [Concomitant]
     Active Substance: SULFAMETHOXAZOLE\TRIMETHOPRIM
     Indication: ANTIBIOTIC PROPHYLAXIS
     Dosage: UNK
     Route: 065
     Dates: start: 20200625
  32. ACYCLOVIR. [Concomitant]
     Active Substance: ACYCLOVIR
     Indication: ANTIVIRAL PROPHYLAXIS
     Dosage: UNK
     Route: 065
     Dates: start: 20200807, end: 20200809
  33. ACYCLOVIR. [Concomitant]
     Active Substance: ACYCLOVIR
     Dosage: UNK
     Route: 065
     Dates: start: 20200809, end: 20200814
  34. POLYETHYLENE GLYCOL 3350. [Concomitant]
     Active Substance: POLYETHYLENE GLYCOL 3350
     Indication: CONSTIPATION PROPHYLAXIS
     Dosage: UNK
     Route: 065
     Dates: start: 20200809, end: 20200810
  35. DIPHENHYDRAMINE. [Concomitant]
     Active Substance: DIPHENHYDRAMINE
     Indication: DIFFUSE LARGE B-CELL LYMPHOMA
     Dosage: UNK
     Route: 065
     Dates: start: 20200813, end: 20200813
  36. VANCOMYCIN [Concomitant]
     Active Substance: VANCOMYCIN
     Indication: ANTIBIOTIC PROPHYLAXIS
     Dosage: UNK
     Route: 065
     Dates: start: 20200814, end: 20200817
  37. METHYLPREDNISOLONE. [Concomitant]
     Active Substance: METHYLPREDNISOLONE
     Indication: CYTOKINE RELEASE SYNDROME
     Dosage: UNK
     Route: 065
     Dates: start: 20200815, end: 20200819
  38. IMODIUM [Concomitant]
     Active Substance: LOPERAMIDE HYDROCHLORIDE
     Dosage: 4 MG, Q6H
     Route: 065
  39. SODIUM CHLORIDE. [Concomitant]
     Active Substance: SODIUM CHLORIDE
     Indication: IMAGING PROCEDURE
     Dosage: 0.9 %
     Route: 065
     Dates: start: 20200808, end: 20200828
  40. HEPARIN LOCK FLUSH [Concomitant]
     Active Substance: HEPARIN SODIUM
     Indication: THROMBOSIS PROPHYLAXIS
     Dosage: UNK, PF
     Route: 065
     Dates: start: 20200617
  41. DOCUSATE SODIUM + SENNA [Concomitant]
     Active Substance: DOCUSATE SODIUM\SENNOSIDE A\SENNOSIDE B
     Indication: CONSTIPATION PROPHYLAXIS
     Dosage: UNK
     Route: 065
     Dates: start: 20200807, end: 20200810
  42. MIDAZOLAM. [Concomitant]
     Active Substance: MIDAZOLAM
     Indication: HYDRONEPHROSIS
     Dosage: UNK
     Route: 065
     Dates: start: 20200807, end: 20200807
  43. NOREPINEPHRINE. [Concomitant]
     Active Substance: NOREPINEPHRINE
     Indication: CYTOKINE RELEASE SYNDROME
     Dosage: UNK
     Route: 065
     Dates: start: 20200814, end: 20200815
  44. CITALOPRAM [Concomitant]
     Active Substance: CITALOPRAM HYDROBROMIDE
     Indication: PRODUCT USED FOR UNKNOWN INDICATION
     Dosage: UNK
     Route: 065
     Dates: start: 20200713
  45. PHENYLEPHRINE [Concomitant]
     Active Substance: PHENYLEPHRINE HYDROCHLORIDE
     Indication: CYTOKINE RELEASE SYNDROME
     Dosage: UNK
     Route: 065
     Dates: start: 20200815, end: 20200815
  46. SODIUM CHLORIDE. [Concomitant]
     Active Substance: SODIUM CHLORIDE
     Dosage: 0.9 %
     Route: 065
     Dates: start: 20200811, end: 20200814
  47. SODIUM CHLORIDE. [Concomitant]
     Active Substance: SODIUM CHLORIDE
     Dosage: 0.9 %
     Route: 065
     Dates: start: 20200817, end: 20200817
  48. POTASSIUM CHLORIDE. [Concomitant]
     Active Substance: POTASSIUM CHLORIDE
     Dosage: UNK, IN WATER
     Route: 065
     Dates: start: 20200812, end: 20200818
  49. ONDANSETRON [Concomitant]
     Active Substance: ONDANSETRON
     Indication: DIFFUSE LARGE B-CELL LYMPHOMA
     Dosage: UNK
     Route: 065
     Dates: start: 20200807, end: 20200811
  50. ACETAMINOPHEN. [Concomitant]
     Active Substance: ACETAMINOPHEN
     Indication: CYTOKINE RELEASE SYNDROME
     Dosage: UNK
     Route: 065
     Dates: start: 20200813, end: 20200813
  51. METHYLPREDNISOLONE. [Concomitant]
     Active Substance: METHYLPREDNISOLONE
     Dosage: UNK
     Route: 065
     Dates: start: 20200820, end: 20200820
  52. PEMBROLIZUMAB. [Suspect]
     Active Substance: PEMBROLIZUMAB
     Indication: DIFFUSE LARGE B-CELL LYMPHOMA
     Dosage: UNK
     Route: 042
     Dates: start: 20200811
  53. SODIUM CHLORIDE. [Concomitant]
     Active Substance: SODIUM CHLORIDE
     Indication: PROPHYLAXIS
     Dosage: PF 0.9 %
     Route: 065
     Dates: start: 20200807, end: 20200807
  54. IOHEXOL [Concomitant]
     Active Substance: IOHEXOL
     Indication: IMAGING PROCEDURE
     Dosage: UNK
     Route: 065
     Dates: start: 20200807, end: 20200807
  55. ENOXAPARIN [Concomitant]
     Active Substance: ENOXAPARIN
     Indication: THROMBOSIS PROPHYLAXIS
     Dosage: UNK
     Route: 065
     Dates: start: 20200807, end: 20200815
  56. ALLOPURINOL. [Concomitant]
     Active Substance: ALLOPURINOL
     Indication: PROPHYLAXIS
     Dosage: UNK
     Route: 065
     Dates: start: 20200807, end: 20200816
  57. MICAFUNGIN. [Concomitant]
     Active Substance: MICAFUNGIN SODIUM
     Indication: ANTIFUNGAL PROPHYLAXIS
     Dosage: UNK
     Route: 065
     Dates: start: 20200812, end: 20200818
  58. LEVETIRACETAM. [Concomitant]
     Active Substance: LEVETIRACETAM
     Indication: SEIZURE PROPHYLAXIS
     Dosage: UNK
     Route: 065
     Dates: start: 20200812, end: 20200828
  59. LACTATED RINGERS SOLUTION [Concomitant]
     Active Substance: CALCIUM CHLORIDE\POTASSIUM CHLORIDE\SODIUM CHLORIDE\SODIUM LACTATE
     Indication: PROPHYLAXIS
     Dosage: UNK
     Route: 065
     Dates: start: 20200814, end: 20200814
  60. GADOBENATE DIMEGLUMINE [Concomitant]
     Active Substance: GADOBENATE DIMEGLUMINE
     Indication: IMAGING PROCEDURE
     Dosage: UNK
     Route: 065
     Dates: start: 20200815, end: 20200815

REACTIONS (1)
  - Colitis [Recovered/Resolved]

NARRATIVE: CASE EVENT DATE: 20200817
